FAERS Safety Report 14917593 (Version 3)
Quarter: 2019Q1

REPORT INFORMATION
  Report Type: Spontaneous
  Country: US (occurrence: US)
  Receive Date: 20180521
  Receipt Date: 20190102
  Transmission Date: 20190417
  Serious: Yes (Death, Other)
  Sender: FDA-Public Use
  Company Number: US-ASTRAZENECA-2018SE63089

PATIENT
  Age: 23055 Day
  Sex: Female
  Weight: 104.3 kg

DRUGS (43)
  1. NEXIUM [Suspect]
     Active Substance: ESOMEPRAZOLE MAGNESIUM
     Indication: ULCER
     Route: 048
     Dates: start: 2009, end: 2010
  2. PRILOSEC OTC [Suspect]
     Active Substance: OMEPRAZOLE MAGNESIUM
     Dosage: TAKE 1 TABLET BY MOUTH ONCE A DAY
     Route: 048
     Dates: start: 20141006
  3. AMIODARONE [Concomitant]
     Active Substance: AMIODARONE
     Dosage: 200.0MG ONCE/SINGLE ADMINISTRATION
     Route: 065
     Dates: start: 20150310
  4. ALLOPURINOL. [Concomitant]
     Active Substance: ALLOPURINOL
  5. NEXIUM [Suspect]
     Active Substance: ESOMEPRAZOLE MAGNESIUM
     Indication: ULCER
     Route: 048
     Dates: start: 1990, end: 2015
  6. SPIRIVA [Concomitant]
     Active Substance: TIOTROPIUM BROMIDE MONOHYDRATE
     Indication: LUNG INFECTION
     Dosage: 18 MCG CAPSULE 1 CAPSULE ONCE A DAY
     Route: 065
  7. TRIAMTERENE. [Concomitant]
     Active Substance: TRIAMTERENE
     Route: 065
  8. PRILOSEC OTC [Suspect]
     Active Substance: OMEPRAZOLE MAGNESIUM
     Route: 048
     Dates: start: 1990, end: 2015
  9. PROTONIX [Suspect]
     Active Substance: PANTOPRAZOLE SODIUM
     Dosage: GENERIC
     Route: 048
     Dates: start: 20150826
  10. FISH OIL [Concomitant]
     Active Substance: FISH OIL
     Route: 065
     Dates: start: 20150109
  11. LIPITOR [Concomitant]
     Active Substance: ATORVASTATIN CALCIUM
     Route: 065
  12. ACETAMINOPHEN. [Concomitant]
     Active Substance: ACETAMINOPHEN
     Indication: PAIN
     Route: 065
  13. DIAZEPAM. [Concomitant]
     Active Substance: DIAZEPAM
  14. LORAZEPAM. [Concomitant]
     Active Substance: LORAZEPAM
  15. LISINOPRIL. [Concomitant]
     Active Substance: LISINOPRIL
  16. CEPHALEXIN. [Concomitant]
     Active Substance: CEPHALEXIN
     Route: 065
  17. COZAAR [Concomitant]
     Active Substance: LOSARTAN POTASSIUM
     Dosage: 50.0MG ONCE/SINGLE ADMINISTRATION
     Route: 065
  18. ZANTAC [Concomitant]
     Active Substance: RANITIDINE HYDROCHLORIDE
     Route: 065
  19. CIPROFLOXACIN. [Concomitant]
     Active Substance: CIPROFLOXACIN
  20. IBUPROFEN. [Concomitant]
     Active Substance: IBUPROFEN
  21. GABAPENTIN. [Concomitant]
     Active Substance: GABAPENTIN
  22. PRILOSEC [Suspect]
     Active Substance: OMEPRAZOLE MAGNESIUM
     Indication: ULCER
     Route: 048
     Dates: start: 2014
  23. PREVACID [Suspect]
     Active Substance: LANSOPRAZOLE
     Indication: ULCER
     Route: 065
  24. CARVEDILOL. [Concomitant]
     Active Substance: CARVEDILOL
     Dosage: 1 TABLET WITH FOOD TWICE A DAY
     Route: 065
     Dates: start: 20150109
  25. MULTAQ [Concomitant]
     Active Substance: DRONEDARONE
     Route: 065
     Dates: start: 20150109
  26. PEPCID [Concomitant]
     Active Substance: FAMOTIDINE
     Route: 065
  27. METFORMIN [Concomitant]
     Active Substance: METFORMIN HYDROCHLORIDE
  28. SULFAMETHOXAZOLE-TRIMETHOPRIM [Concomitant]
     Active Substance: SULFAMETHOXAZOLE\TRIMETHOPRIM
  29. NEXIUM [Suspect]
     Active Substance: ESOMEPRAZOLE MAGNESIUM
     Indication: ULCER
     Route: 048
     Dates: start: 20091102
  30. PLAVIX [Concomitant]
     Active Substance: CLOPIDOGREL BISULFATE
     Indication: CARDIAC DISORDER
     Dosage: 75.0MG ONCE/SINGLE ADMINISTRATION
     Route: 065
     Dates: start: 20150109
  31. HYDROCHLOROTHIAZIDE. [Concomitant]
     Active Substance: HYDROCHLOROTHIAZIDE
     Route: 065
  32. OMEGA 3 FISH OIL [Concomitant]
     Active Substance: FISH OIL\OMEGA-3 FATTY ACIDS
     Route: 065
  33. GLIPIZIDE. [Concomitant]
     Active Substance: GLIPIZIDE
     Route: 065
     Dates: start: 20150109
  34. MELOXICAM. [Concomitant]
     Active Substance: MELOXICAM
  35. ADVAIR HFA [Concomitant]
     Active Substance: FLUTICASONE PROPIONATE\SALMETEROL XINAFOATE
     Indication: LUNG INFECTION
     Route: 065
  36. CHANTIX [Concomitant]
     Active Substance: VARENICLINE TARTRATE
     Indication: SMOKING CESSATION THERAPY
     Dosage: 1.0MG ONCE/SINGLE ADMINISTRATION
     Route: 065
  37. ASPIRIN. [Concomitant]
     Active Substance: ASPIRIN
     Indication: ANTICOAGULANT THERAPY
     Route: 065
     Dates: start: 20150109
  38. TAGAMET [Concomitant]
     Active Substance: CIMETIDINE
     Route: 065
  39. FUROSEMIDE. [Concomitant]
     Active Substance: FUROSEMIDE
     Route: 065
     Dates: start: 20160421
  40. DISKUS [Concomitant]
     Dosage: 1 PUFF TWICW A DAY
     Route: 065
     Dates: start: 20150109
  41. NAPROXEN. [Concomitant]
     Active Substance: NAPROXEN
  42. FENOFIBRATE. [Concomitant]
     Active Substance: FENOFIBRATE
  43. INDOMETHACIN. [Concomitant]
     Active Substance: INDOMETHACIN

REACTIONS (5)
  - Acute kidney injury [Unknown]
  - Renal failure [Recovered/Resolved]
  - Pneumonia [Fatal]
  - Chronic obstructive pulmonary disease [Fatal]
  - Chronic kidney disease [Unknown]

NARRATIVE: CASE EVENT DATE: 20150122
